FAERS Safety Report 7918408 (Version 4)
Quarter: 2014Q4

REPORT INFORMATION
  Report Type: Report from Study
  Country: US (occurrence: US)
  Receive Date: 20110428
  Receipt Date: 20141202
  Transmission Date: 20150529
  Serious: Yes (Other)
  Sender: FDA-Public Use
  Company Number: US-ROCHE-772796

PATIENT
  Age: 54 Year
  Sex: Male
  Weight: 101.2 kg

DRUGS (4)
  1. PROCRIT [Concomitant]
     Active Substance: ERYTHROPOIETIN
  2. HYDROXYZINE [Concomitant]
     Active Substance: HYDROXYZINE\HYDROXYZINE HYDROCHLORIDE
     Dosage: DRUG REPORTED AS HYDROXYZINE BROMATED
     Route: 065
  3. RIBAVIRIN. [Suspect]
     Active Substance: RIBAVIRIN
     Indication: HEPATITIS C
     Dosage: DIVIDED DOSES
     Route: 065
     Dates: start: 20101020
  4. PEGASYS [Suspect]
     Active Substance: PEGINTERFERON ALFA-2A
     Indication: HEPATITIS C
     Dosage: PRE-FILLED SYRINGE. IN WEEK 47 OF TREATMENT
     Route: 065

REACTIONS (11)
  - Retching [Unknown]
  - Memory impairment [Unknown]
  - Weight decreased [Unknown]
  - Odynophagia [Not Recovered/Not Resolved]
  - Confusional state [Unknown]
  - Decreased appetite [Unknown]
  - Pharyngeal mass [Recovering/Resolving]
  - Dry mouth [Unknown]
  - Oropharyngeal pain [Recovering/Resolving]
  - Bloody discharge [Unknown]
  - Fatigue [Not Recovered/Not Resolved]

NARRATIVE: CASE EVENT DATE: 20110406
